FAERS Safety Report 7332625-8 (Version None)
Quarter: 2011Q1

REPORT INFORMATION
  Report Type: 
  Country: None (occurrence: None)
  Receive Date: 20110222
  Receipt Date: 20110119
  Transmission Date: 20110831
  Serious: Yes (Other)
  Sender: FDA-Public Use
  Company Number: 2011P1004439

PATIENT
  Sex: Female

DRUGS (1)
  1. FENTANYL-25 [Suspect]
     Dosage: TRANSDERMAL
     Route: 062

REACTIONS (4)
  - HYPERHIDROSIS [None]
  - CARDIAC DISORDER [None]
  - PARAESTHESIA [None]
  - NAUSEA [None]
